FAERS Safety Report 20350169 (Version 1)
Quarter: 2022Q1

REPORT INFORMATION
  Report Type: Spontaneous
  Country: PT (occurrence: PT)
  Receive Date: 20220119
  Receipt Date: 20220119
  Transmission Date: 20220423
  Serious: Yes (Other)
  Sender: FDA-Public Use
  Company Number: PT-MYLANLABS-2022M1004146

PATIENT
  Age: 32 Year
  Sex: Male

DRUGS (8)
  1. BETAMETHASONE [Suspect]
     Active Substance: BETAMETHASONE
     Indication: Psoriasis
     Dosage: UNK
     Route: 065
  2. OLANZAPINE [Suspect]
     Active Substance: OLANZAPINE
     Indication: Bipolar II disorder
     Dosage: UNK
     Route: 065
  3. FLUOXETINE [Suspect]
     Active Substance: FLUOXETINE HYDROCHLORIDE
     Indication: Bipolar II disorder
     Dosage: UNK
     Route: 065
  4. QUETIAPINE [Suspect]
     Active Substance: QUETIAPINE
     Indication: Bipolar II disorder
     Dosage: UNK
     Route: 065
  5. CALCIPOTRIENE [Suspect]
     Active Substance: CALCIPOTRIENE
     Indication: Psoriasis
     Dosage: UNK
     Route: 061
  6. VALPROIC ACID [Suspect]
     Active Substance: VALPROIC ACID
     Indication: Bipolar II disorder
     Dosage: UNK
     Route: 065
  7. ESCITALOPRAM [Concomitant]
     Active Substance: ESCITALOPRAM OXALATE
     Indication: Bipolar II disorder
     Dosage: 20 MILLIGRAM, QD
     Route: 065
  8. LITHIUM [Concomitant]
     Active Substance: LITHIUM
     Indication: Bipolar II disorder
     Dosage: 800 MILLIGRAM, QD
     Route: 065

REACTIONS (1)
  - Drug ineffective [Unknown]
